FAERS Safety Report 8671399 (Version 4)
Quarter: 2014Q1

REPORT INFORMATION
  Report Type: Spontaneous
  Country: US (occurrence: US)
  Receive Date: 20120718
  Receipt Date: 20140210
  Transmission Date: 20141002
  Serious: Yes (Disabling)
  Sender: FDA-Public Use
  Company Number: US-GLAXOSMITHKLINE-A0984630A

PATIENT
  Age: 45 Year
  Sex: Male
  Weight: 119.1 kg

DRUGS (1)
  1. AVANDIA [Suspect]
     Indication: DIABETES MELLITUS
     Dosage: 4MG PER DAY
     Route: 048
     Dates: start: 20090302, end: 20100415

REACTIONS (2)
  - Myocardial infarction [Not Recovered/Not Resolved]
  - Angina pectoris [Unknown]
